FAERS Safety Report 26036822 (Version 1)
Quarter: 2025Q4

REPORT INFORMATION
  Report Type: Spontaneous
  Country: US (occurrence: US)
  Receive Date: 20251112
  Receipt Date: 20251112
  Transmission Date: 20260118
  Serious: No
  Sender: PARATEK PHARMACEUTICALS
  Company Number: US-PARATEK PHARMACEUTICALS, INC.-2025PTK00927

PATIENT
  Age: 26 Year
  Sex: Female
  Weight: 99.32 kg

DRUGS (6)
  1. NUZYRA [Suspect]
     Active Substance: OMADACYCLINE
     Indication: Skin infection
     Dosage: 450 MG, 1X/DAY FOR TWO DAYS
     Route: 048
     Dates: start: 20250721, end: 20250723
  2. NUZYRA [Suspect]
     Active Substance: OMADACYCLINE
     Indication: Corynebacterium infection
  3. NUZYRA [Suspect]
     Active Substance: OMADACYCLINE
     Indication: Enterococcal infection
  4. NUZYRA [Suspect]
     Active Substance: OMADACYCLINE
     Indication: Peptostreptococcus infection
  5. NUZYRA [Suspect]
     Active Substance: OMADACYCLINE
     Indication: Staphylococcal skin infection
  6. NUZYRA [Suspect]
     Active Substance: OMADACYCLINE
     Indication: Staphylococcal infection

REACTIONS (5)
  - Lip swelling [Recovered/Resolved]
  - Swelling face [Recovered/Resolved]
  - Mouth swelling [Recovered/Resolved]
  - Hypersensitivity [Recovered/Resolved]
  - Headache [Recovered/Resolved]

NARRATIVE: CASE EVENT DATE: 20250721
